FAERS Safety Report 5381471-3 (Version None)
Quarter: 2007Q2

REPORT INFORMATION
  Report Type: 
  Country: None (occurrence: None)
  Receive Date: 20070629
  Receipt Date: 20060720
  Transmission Date: 20071010
  Serious: Yes (Death)
  Sender: FDA-Public Use
  Company Number: 2005154170

PATIENT
  Age: 16 Year
  Sex: Male

DRUGS (2)
  1. ZOLOFT [Suspect]
     Indication: BIPOLAR DISORDER
     Dates: start: 20050101, end: 20050101
  2. ALL OTHER THERAPEUTIC PRODUCTS (ALL OTHER THERAPEUTIC PRODUCTS) [Suspect]
     Dates: end: 20050101

REACTIONS (3)
  - COMPLETED SUICIDE [None]
  - MULTIPLE DRUG OVERDOSE [None]
  - UNEVALUABLE EVENT [None]
